FAERS Safety Report 17265257 (Version 2)
Quarter: 2021Q1

REPORT INFORMATION
  Report Type: Spontaneous
  Country: US (occurrence: US)
  Receive Date: 20200114
  Receipt Date: 20210224
  Transmission Date: 20210419
  Serious: Yes (Life-Threatening, Hospitalization, Other)
  Sender: FDA-Public Use
  Company Number: US-AMGEN-USASP2020003095

PATIENT

DRUGS (6)
  1. FILGRASTIM [Suspect]
     Active Substance: FILGRASTIM
     Indication: PROPHYLAXIS
     Dosage: 5 MICROGRAM/KILOGRAM, AFTER CHEMO
     Route: 065
  2. RITUXIMAB. [Concomitant]
     Active Substance: RITUXIMAB
     Indication: NON-HODGKIN^S LYMPHOMA
     Dosage: 375 MILLIGRAM/SQ. METER ADMINISTERED ON DAY 1
  3. BENDAMUSTINE [Concomitant]
     Active Substance: BENDAMUSTINE
     Indication: CHRONIC LYMPHOCYTIC LEUKAEMIA
     Dosage: 90 MILLIGRAM/SQ. METER ADMINISTERED ON DAYS 1 AND 2
  4. BENDAMUSTINE [Concomitant]
     Active Substance: BENDAMUSTINE
     Indication: NON-HODGKIN^S LYMPHOMA
     Dosage: 90 MILLIGRAM/SQ. METER ADMINISTERED ON DAYS 1 AND 2
  5. RITUXIMAB. [Concomitant]
     Active Substance: RITUXIMAB
     Indication: CHRONIC LYMPHOCYTIC LEUKAEMIA
  6. PEGFILGRASTIM [Suspect]
     Active Substance: PEGFILGRASTIM
     Indication: PROPHYLAXIS
     Dosage: 6 MILLIGRAM, AFTER CHEMO (SAME DAY OF CHEMO)
     Route: 065

REACTIONS (10)
  - Neutropenia [Unknown]
  - Lower respiratory tract infection [Unknown]
  - Urinary tract infection [Unknown]
  - Pyrexia [Unknown]
  - Sepsis [Unknown]
  - Febrile neutropenia [Unknown]
  - Cytopenia [Unknown]
  - Skin infection [Unknown]
  - Upper respiratory tract infection [Unknown]
  - Unevaluable event [Unknown]
